FAERS Safety Report 8425508-3 (Version None)
Quarter: 2012Q2

REPORT INFORMATION
  Report Type: 
  Country: None (occurrence: None)
  Receive Date: 20120605
  Receipt Date: 20120605
  Transmission Date: 20120825
  Serious: No
  Sender: FDA-Public Use
  Company Number: None

PATIENT
  Age: 75 Year
  Sex: Female
  Weight: 68.0396 kg

DRUGS (1)
  1. SENSORCAINE [Suspect]
     Indication: ANAESTHESIA
     Dosage: 15MG INTRATHECAL
     Route: 037
     Dates: start: 20120323

REACTIONS (1)
  - INADEQUATE ANALGESIA [None]
